FAERS Safety Report 7047279-8 (Version None)
Quarter: 2010Q4

REPORT INFORMATION
  Report Type: 
  Country: None (occurrence: None)
  Receive Date: 20101015
  Receipt Date: 20101006
  Transmission Date: 20110411
  Serious: Yes (Hospitalization)
  Sender: FDA-Public Use
  Company Number: JP-ASTRAZENECA-2010SE48257

PATIENT
  Age: 33 Year
  Sex: Female

DRUGS (1)
  1. SYMBICORT [Suspect]
     Dosage: 2 DF, NUMBER OF SEPARATE DOSES UNKNOWN
     Route: 055
     Dates: start: 20100612, end: 20100927

REACTIONS (1)
  - DYSPNOEA [None]
